FAERS Safety Report 12920430 (Version 1)
Quarter: 2016Q4

REPORT INFORMATION
  Report Type: Spontaneous
  Country: CN (occurrence: CN)
  Receive Date: 20161108
  Receipt Date: 20161108
  Transmission Date: 20170207
  Serious: Yes (Other)
  Sender: FDA-Public Use
  Company Number: PHHY2016CN151247

PATIENT
  Age: 60 Year
  Sex: Female

DRUGS (1)
  1. ZOLEDRONATE [Suspect]
     Active Substance: ZOLEDRONIC ACID
     Indication: BREAST CANCER
     Dosage: 8 MG, EVERY 6 MONTH
     Route: 042

REACTIONS (4)
  - Osteonecrosis of jaw [Unknown]
  - Impaired healing [Unknown]
  - Pain in jaw [Recovered/Resolved]
  - Infection [Unknown]
